FAERS Safety Report 10061739 (Version 1)
Quarter: 2014Q2

REPORT INFORMATION
  Report Type: Spontaneous
  Country: US (occurrence: None)
  Receive Date: 20140404
  Receipt Date: 20140404
  Transmission Date: 20141212
  Serious: Yes (Other)
  Sender: FDA-Public Use
  Company Number: None

PATIENT
  Age: 24 Year
  Sex: Female
  Weight: 58.97 kg

DRUGS (1)
  1. MONISTAT 3 [Suspect]
     Indication: VULVOVAGINAL MYCOTIC INFECTION
     Dosage: 3 DAYS TAKE UNDER THE TONGUE AT BEDTIME
     Route: 048
     Dates: start: 20140329, end: 20140401

REACTIONS (7)
  - Gastrointestinal disorder [None]
  - Nausea [None]
  - Vomiting [None]
  - Mood altered [None]
  - Depression [None]
  - Anxiety [None]
  - Activities of daily living impaired [None]
